FAERS Safety Report 6239028-8 (Version None)
Quarter: 2009Q2

REPORT INFORMATION
  Report Type: 
  Country: None (occurrence: None)
  Receive Date: 20090622
  Receipt Date: 20090615
  Transmission Date: 20091009
  Serious: Yes (Death, Other)
  Sender: FDA-Public Use
  Company Number: PHHY2009JP21914

PATIENT
  Age: 12 Year
  Sex: Female
  Weight: 31 kg

DRUGS (4)
  1. SANDIMMUNE [Suspect]
     Indication: CORD BLOOD TRANSPLANT THERAPY
  2. PREDNISOLONE [Suspect]
     Indication: CORD BLOOD TRANSPLANT THERAPY
  3. BUSULFAN [Concomitant]
     Indication: CORD BLOOD TRANSPLANT THERAPY
     Dosage: 16 MG
  4. L-PAM [Concomitant]
     Indication: CORD BLOOD TRANSPLANT THERAPY
     Dosage: 6.4 MG/KG

REACTIONS (3)
  - ACUTE GRAFT VERSUS HOST DISEASE [None]
  - ACUTE HEPATIC FAILURE [None]
  - MONOCYTOSIS [None]
